FAERS Safety Report 10700335 (Version 1)
Quarter: 2015Q1

REPORT INFORMATION
  Report Type: Spontaneous
  Country: GB (occurrence: None)
  Receive Date: 20150107
  Receipt Date: 20150107
  Transmission Date: 20150721
  Serious: Yes (Hospitalization)
  Sender: FDA-Public Use
  Company Number: FK201500001

PATIENT
  Sex: Female
  Weight: 44.5 kg

DRUGS (7)
  1. ETANERCEPT [Suspect]
     Active Substance: ETANERCEPT
     Indication: PRODUCT USED FOR UNKNOWN INDICATION
     Dates: start: 20110530
  2. CALCICHEW D3 [Concomitant]
     Active Substance: CALCIUM\CHOLECALCIFEROL
  3. FELODIPINE. [Concomitant]
     Active Substance: FELODIPINE
  4. ALENDRONIC ACID [Concomitant]
     Active Substance: ALENDRONIC ACID
  5. CISPLATIN. [Suspect]
     Active Substance: CISPLATIN
     Indication: PRODUCT USED FOR UNKNOWN INDICATION
  6. DICLOFENAC [Concomitant]
     Active Substance: DICLOFENAC
  7. THIAMINE [Concomitant]
     Active Substance: THIAMINE

REACTIONS (5)
  - Malaise [None]
  - Dizziness [None]
  - Acute myocardial infarction [None]
  - Haemoglobin decreased [None]
  - Blood magnesium decreased [None]
